FAERS Safety Report 4630021-5 (Version None)
Quarter: 2005Q2

REPORT INFORMATION
  Report Type: 
  Country: None (occurrence: None)
  Receive Date: 20050408
  Receipt Date: 20040802
  Transmission Date: 20051028
  Serious: Yes (Hospitalization)
  Sender: FDA-Public Use
  Company Number: PL-ROCHE-376233

PATIENT
  Age: 31 Year
  Sex: Female
  Weight: 60.1 kg

DRUGS (14)
  1. DACLIZUMAB [Suspect]
     Dosage: DOSE = 125 MG.
     Route: 042
     Dates: start: 20040320, end: 20040320
  2. DACLIZUMAB [Suspect]
     Route: 042
     Dates: start: 20040402, end: 20040517
  3. MYCOPHENOLATE MOFETIL [Suspect]
     Route: 048
     Dates: start: 20040320
  4. MYCOPHENOLATE MOFETIL [Suspect]
     Route: 048
  5. MYCOPHENOLATE MOFETIL [Suspect]
     Dosage: 750 MG IN THE MORNING, 500 MG AT NOON AND 750 MG IN THE EVENING.
     Route: 048
  6. TACROLIMUS [Suspect]
     Route: 048
     Dates: start: 20040320, end: 20041011
  7. TACROLIMUS [Suspect]
     Dosage: 2 MG TAKEN IN MORNING AND 1 MG TAKEN IN EVENING.
     Route: 048
     Dates: start: 20041013
  8. PREDNISONE [Suspect]
     Route: 048
     Dates: start: 20040320
  9. COTRIMOXAZOL [Concomitant]
     Route: 048
     Dates: start: 20040320, end: 20041011
  10. RANIGAST [Concomitant]
     Route: 048
     Dates: start: 20040320
  11. NYSTATINE [Concomitant]
     Route: 048
     Dates: start: 20040320
  12. METOCARD [Concomitant]
     Route: 048
     Dates: start: 20040420
  13. FUROSEMIDE [Concomitant]
     Route: 048
     Dates: start: 20040324
  14. KALIPOZ [Concomitant]
     Route: 048
     Dates: start: 20040505, end: 20041011

REACTIONS (3)
  - COMPLICATIONS OF TRANSPLANTED KIDNEY [None]
  - CYTOMEGALOVIRUS INFECTION [None]
  - POLYOMAVIRUS INTERSTITIAL NEPHRITIS [None]
